FAERS Safety Report 11630232 (Version 2)
Quarter: 2017Q3

REPORT INFORMATION
  Report Type: Spontaneous
  Country: IT (occurrence: JP)
  Receive Date: 20151014
  Receipt Date: 20170712
  Transmission Date: 20171127
  Serious: Yes (Death)
  Sender: FDA-Public Use
  Company Number: IT-SIGMA-TAU US-2015STPI000637

PATIENT
  Age: 56 Year
  Sex: Female

DRUGS (40)
  1. SODIUM CHLORIDE. [Concomitant]
     Active Substance: SODIUM CHLORIDE
  2. NITRAZEPAM [Concomitant]
     Active Substance: NITRAZEPAM
  3. METOCLOPRAMIDE HYDROCHLORIDE. [Concomitant]
     Active Substance: METOCLOPRAMIDE HYDROCHLORIDE
  4. POTASSIUM ASPARTATE [Concomitant]
     Active Substance: POTASSIUM ASPARTATE
  5. SOLDEM 3A [Concomitant]
     Active Substance: CARBOHYDRATES\POTASSIUM CHLORIDE\SODIUM CHLORIDE\SODIUM LACTATE
  6. MENATETRENONE [Concomitant]
     Active Substance: MENATETRENONE
  7. CARNITOR [Suspect]
     Active Substance: LEVOCARNITINE
     Indication: CARNITINE DEFICIENCY
     Dosage: 15000 MG, X1
     Route: 042
     Dates: start: 20140308, end: 20140308
  8. CARNITOR [Suspect]
     Active Substance: LEVOCARNITINE
     Dosage: 9000 MG, QD
     Route: 042
     Dates: start: 20140311, end: 20140324
  9. VITAMEDIN                          /00176001/ [Concomitant]
  10. ALBUMIN HUMAN [Concomitant]
     Active Substance: ALBUMIN HUMAN
  11. FENTANYL CITRATE. [Concomitant]
     Active Substance: FENTANYL CITRATE
  12. FUROSEMIDE. [Concomitant]
     Active Substance: FUROSEMIDE
  13. LANSOPRAZOLE. [Concomitant]
     Active Substance: LANSOPRAZOLE
  14. ROCURONIUM BROMIDE. [Concomitant]
     Active Substance: ROCURONIUM BROMIDE
  15. CARNITOR [Suspect]
     Active Substance: LEVOCARNITINE
     Dosage: 12000 MG, QD
     Route: 042
     Dates: start: 20140309, end: 20140310
  16. SODIUM GUALENATE [Concomitant]
     Active Substance: SODIUM GUALENATE
  17. DEXMEDETOMIDINE HYDROCHLORIDE. [Concomitant]
     Active Substance: DEXMEDETOMIDINE HYDROCHLORIDE
  18. THROMBOMODULIN ALFA [Concomitant]
     Active Substance: THROMBOMODULIN ALFA
  19. MANNITOL 20% A.N.B [Concomitant]
  20. NICARDIPINE HYDROCHLORIDE. [Concomitant]
     Active Substance: NICARDIPINE HYDROCHLORIDE
  21. LACTULOSE. [Concomitant]
     Active Substance: LACTULOSE
  22. GUAIAZULENE [Concomitant]
     Active Substance: GUAIAZULENE
  23. ELASPOL [Concomitant]
     Active Substance: SIVELESTAT SODIUM
  24. CEFOZOPRAN HYDROCHLORIDE [Concomitant]
     Active Substance: CEFOZOPRAN HYDROCHLORIDE
  25. TRANEXAMIC ACID. [Concomitant]
     Active Substance: TRANEXAMIC ACID
  26. CEFMETAZOLE SODIUM [Concomitant]
     Active Substance: CEFMETAZOLE SODIUM
     Indication: PRODUCT USED FOR UNKNOWN INDICATION
  27. ENOXOLONE [Concomitant]
     Active Substance: ENOXOLONE
  28. XYLOCAINE [Concomitant]
     Active Substance: LIDOCAINE HYDROCHLORIDE
  29. SOLACET F [Concomitant]
  30. ADONA                              /06880501/ [Concomitant]
  31. NEOPHAGEN                          /00467204/ [Concomitant]
     Active Substance: CYSTEINE\GLYCINE\GLYCYRRHIZIN
  32. VEEN D [Concomitant]
     Active Substance: CALCIUM CHLORIDE\DEXTROSE\POTASSIUM CHLORIDE\SODIUM ACETATE\SODIUM CHLORIDE
  33. MEROPENEM TRIHYDRATE [Concomitant]
     Active Substance: MEROPENEM
     Indication: PRODUCT USED FOR UNKNOWN INDICATION
  34. DOPAMINE HYDROCHLORIDE. [Concomitant]
     Active Substance: DOPAMINE HYDROCHLORIDE
  35. GLUCOSE [Concomitant]
     Active Substance: DEXTROSE
  36. METHYLPREDNISOLONE SODIUM SUCCINATE. [Concomitant]
     Active Substance: METHYLPREDNISOLONE SODIUM SUCCINATE
  37. PANTHENOL [Concomitant]
     Active Substance: PANTHENOL
  38. PREDNISOLONE. [Concomitant]
     Active Substance: PREDNISOLONE
  39. DIPHENHYDRAMINE HYDROCHLORIDE. [Concomitant]
     Active Substance: DIPHENHYDRAMINE HYDROCHLORIDE
  40. POTASSIUM CHLORIDE. [Concomitant]
     Active Substance: POTASSIUM CHLORIDE

REACTIONS (2)
  - Shock [Fatal]
  - Amylase increased [Unknown]

NARRATIVE: CASE EVENT DATE: 20140310
